FAERS Safety Report 8289743-X (Version None)
Quarter: 2012Q2

REPORT INFORMATION
  Report Type: 
  Country: None (occurrence: None)
  Receive Date: 20120417
  Receipt Date: 20120415
  Transmission Date: 20120825
  Serious: Yes (Other)
  Sender: FDA-Public Use
  Company Number: US-PFIZER INC-2012093341

PATIENT
  Sex: Female
  Weight: 48 kg

DRUGS (2)
  1. LEVOTHYROXINE [Concomitant]
     Indication: THYROID DISORDER
     Dosage: UNK
  2. CHANTIX [Suspect]
     Indication: SMOKING CESSATION THERAPY
     Dosage: 0.5 MG, 1X/DAY
     Route: 048
     Dates: start: 20120413

REACTIONS (4)
  - TREMOR [None]
  - FEELING ABNORMAL [None]
  - ANXIETY [None]
  - PANIC ATTACK [None]
